FAERS Safety Report 13169000 (Version 1)
Quarter: 2017Q1

REPORT INFORMATION
  Report Type: Spontaneous
  Country: US (occurrence: US)
  Receive Date: 20170131
  Receipt Date: 20170131
  Transmission Date: 20170428
  Serious: No
  Sender: FDA-Public Use
  Company Number: US-ABBVIE-16K-163-1535483-00

PATIENT
  Age: 57 Year
  Sex: Female

DRUGS (6)
  1. ETODOLAC. [Concomitant]
     Active Substance: ETODOLAC
     Indication: RHEUMATOID ARTHRITIS
  2. LISINOPRIL. [Concomitant]
     Active Substance: LISINOPRIL
     Indication: HYPERTENSION
  3. LEVOTHYROXINE. [Concomitant]
     Active Substance: LEVOTHYROXINE
     Indication: HYPOTHYROIDISM
  4. FLUOXETINE [Concomitant]
     Active Substance: FLUOXETINE HYDROCHLORIDE
     Indication: DEPRESSION
  5. HUMIRA [Suspect]
     Active Substance: ADALIMUMAB
     Indication: RHEUMATOID ARTHRITIS
     Route: 058
  6. WARFARIN [Concomitant]
     Active Substance: WARFARIN
     Indication: ATRIAL FIBRILLATION

REACTIONS (4)
  - Injection site pain [Not Recovered/Not Resolved]
  - Rheumatoid arthritis [Not Recovered/Not Resolved]
  - Incorrect dose administered [Unknown]
  - Product quality issue [Not Recovered/Not Resolved]

NARRATIVE: CASE EVENT DATE: 201508
